FAERS Safety Report 9461763 (Version 1)
Quarter: 2013Q3

REPORT INFORMATION
  Report Type: Spontaneous
  Country: US (occurrence: US)
  Receive Date: 20130816
  Receipt Date: 20130816
  Transmission Date: 20140515
  Serious: Yes (Other)
  Sender: FDA-Public Use
  Company Number: US-JNJFOC-20130608641

PATIENT
  Age: 56 Year
  Sex: Male
  Weight: 129.28 kg

DRUGS (6)
  1. STELARA [Suspect]
     Indication: PSORIASIS
     Dosage: 0.190
     Route: 058
     Dates: start: 20120507
  2. AVAPRO [Concomitant]
     Route: 065
  3. METFORMIN [Concomitant]
     Route: 065
  4. LEVOTHYROXINE [Concomitant]
     Route: 065
  5. PROTOPIC [Concomitant]
     Route: 065
  6. ASPIRIN [Concomitant]
     Route: 065

REACTIONS (1)
  - Tuberculosis [Not Recovered/Not Resolved]
